FAERS Safety Report 9284159 (Version 3)
Quarter: 2013Q3

REPORT INFORMATION
  Report Type: Spontaneous
  Country: FR (occurrence: FR)
  Receive Date: 20130510
  Receipt Date: 20130708
  Transmission Date: 20140515
  Serious: Yes (Hospitalization)
  Sender: FDA-Public Use
  Company Number: FR-ABBOTT-13X-056-1086519-00

PATIENT
  Age: 54 Year
  Sex: Female

DRUGS (5)
  1. FENOFIBRATE [Suspect]
     Indication: HYPERTRIGLYCERIDAEMIA
     Route: 048
     Dates: start: 20080908, end: 20110124
  2. RAMIPRIL BIOGARAN [Suspect]
     Indication: HYPERTENSION
     Route: 048
     Dates: start: 20101013
  3. RAMIPRIL BIOGARAN [Suspect]
     Route: 048
     Dates: start: 20110123, end: 20110124
  4. OMEPRAZOLE [Concomitant]
     Indication: PRODUCT USED FOR UNKNOWN INDICATION
     Route: 048
  5. BROMAZEPAM [Concomitant]
     Indication: PRODUCT USED FOR UNKNOWN INDICATION
     Route: 048

REACTIONS (9)
  - Pancreatitis acute [Recovered/Resolved]
  - Gastrointestinal hypomotility [Unknown]
  - Hepatic function abnormal [Recovered/Resolved]
  - Hypertriglyceridaemia [Unknown]
  - High density lipoprotein decreased [Unknown]
  - Low density lipoprotein decreased [Unknown]
  - Cough [Unknown]
  - Odynophagia [Unknown]
  - Hepatocellular injury [Recovered/Resolved]
